FAERS Safety Report 8554023-1 (Version None)
Quarter: 2012Q3

REPORT INFORMATION
  Report Type: 
  Country: None (occurrence: None)
  Receive Date: 20120731
  Receipt Date: 20120710
  Transmission Date: 20120928
  Serious: No
  Sender: FDA-Public Use
  Company Number: US-009507513-2012SP032490

PATIENT

DRUGS (1)
  1. NUVARING [Suspect]
     Indication: CONTRACEPTION
     Route: 067
     Dates: start: 20110101

REACTIONS (1)
  - DEVICE EXPULSION [None]
